FAERS Safety Report 15001578 (Version 1)
Quarter: 2018Q2

REPORT INFORMATION
  Report Type: Spontaneous
  Country: NZ (occurrence: NZ)
  Receive Date: 20180612
  Receipt Date: 20180612
  Transmission Date: 20180711
  Serious: Yes (Death)
  Sender: FDA-Public Use
  Company Number: NZ-CELGENEUS-NZL-20180503017

PATIENT
  Sex: Male

DRUGS (1)
  1. THALIDOMIDE [Suspect]
     Active Substance: THALIDOMIDE
     Indication: PRODUCT USED FOR UNKNOWN INDICATION
     Route: 048

REACTIONS (1)
  - Death [Fatal]
